FAERS Safety Report 5651673-7 (Version None)
Quarter: 2008Q1

REPORT INFORMATION
  Report Type: 
  Country: None (occurrence: None)
  Receive Date: 20080131
  Receipt Date: 20071105
  Transmission Date: 20080703
  Serious: No
  Sender: FDA-Public Use
  Company Number: US200711001213

PATIENT
  Age: 53 Year
  Sex: Female
  Weight: 172.3 kg

DRUGS (6)
  1. BYETTA [Suspect]
     Indication: TYPE 2 DIABETES MELLITUS
     Dosage: 5 UG, 2/D, SUBCUTANEOUS; 10 UG, 2/D; SUBCUTANEOUS
     Route: 058
     Dates: start: 20070101, end: 20071001
  2. BYETTA [Suspect]
     Indication: TYPE 2 DIABETES MELLITUS
     Dosage: 5 UG, 2/D, SUBCUTANEOUS; 10 UG, 2/D; SUBCUTANEOUS
     Route: 058
     Dates: start: 20070901
  3. EXENATIDE 10MCG PEN, DISPOSABLE DEVICE (EXENATIDE PEN (10MCG)) PEN,DIS [Concomitant]
  4. GLUCOPHAGE [Concomitant]
  5. DRUG USED IN DIABETES [Concomitant]
  6. GLIPIZIDE [Concomitant]

REACTIONS (4)
  - FEELING JITTERY [None]
  - NAUSEA [None]
  - NERVOUSNESS [None]
  - WEIGHT DECREASED [None]
